FAERS Safety Report 5726623-5 (Version None)
Quarter: 2008Q2

REPORT INFORMATION
  Report Type: 
  Country: None (occurrence: None)
  Receive Date: 20080502
  Receipt Date: 20080423
  Transmission Date: 20081010
  Serious: Yes (Hospitalization)
  Sender: FDA-Public Use
  Company Number: AU-JNJFOC-20080403935

PATIENT
  Sex: Female
  Weight: 93 kg

DRUGS (13)
  1. TOPAMAX [Suspect]
     Route: 048
  2. TOPAMAX [Suspect]
     Route: 048
  3. TOPAMAX [Suspect]
     Indication: DRUG USE FOR UNKNOWN INDICATION
     Dosage: INCREASED AT 25 MG INCREMENTS FORTNIGHTLY
     Route: 048
  4. IRBESARTAN [Concomitant]
     Dosage: ^M^
  5. EPILUM [Concomitant]
     Dosage: ^M^
  6. EPILUM [Concomitant]
  7. EPILUM [Concomitant]
  8. CLONAZEPAM [Concomitant]
  9. GLUCOSAMINE [Concomitant]
     Dosage: ^1000 1 M^
  10. MACUVISION [Concomitant]
     Dosage: ^1 M ^
  11. CITRACAL PLUS D [Concomitant]
     Dosage: ^1 M^
  12. COENZYME Q10 [Concomitant]
     Dosage: ^1 M^
  13. MULTI-VITAMIN [Concomitant]
     Dosage: ^1 M^

REACTIONS (6)
  - BLOOD POTASSIUM DECREASED [None]
  - EXTRASYSTOLES [None]
  - HEADACHE [None]
  - HEART RATE INCREASED [None]
  - HYPERTENSION [None]
  - WEIGHT DECREASED [None]
